FAERS Safety Report 4335304-4 (Version None)
Quarter: 2004Q2

REPORT INFORMATION
  Report Type: 
  Country: None (occurrence: None)
  Receive Date: 20040408
  Receipt Date: 20040408
  Transmission Date: 20050107
  Serious: No
  Sender: FDA-Public Use
  Company Number: None

PATIENT
  Sex: Female
  Weight: 90.7194 kg

DRUGS (1)
  1. EFFEXOR [Suspect]
     Indication: DEPRESSION
     Dosage: 150  MG   CAPSULE ORAL
     Route: 048
     Dates: start: 20031003, end: 20040325

REACTIONS (5)
  - DRUG WITHDRAWAL SYNDROME [None]
  - HEART RATE INCREASED [None]
  - HYPERTENSION [None]
  - PRURITUS [None]
  - VISION BLURRED [None]
